FAERS Safety Report 7902902-8 (Version None)
Quarter: 2011Q4

REPORT INFORMATION
  Report Type: 
  Country: None (occurrence: None)
  Receive Date: 20111107
  Receipt Date: 20111102
  Transmission Date: 20120403
  Serious: Yes (Life-Threatening, Hospitalization)
  Sender: FDA-Public Use
  Company Number: AUR-APL-2011-05683

PATIENT
  Age: 52 Year
  Sex: Female
  Weight: 62 kg

DRUGS (3)
  1. FLUCONAZOLE [Suspect]
     Indication: PRODUCT USED FOR UNKNOWN INDICATION
     Dosage: (150 MG, 1), ORAL
     Route: 048
     Dates: start: 20111012
  2. HORMONE REPLACEMENT THERAPY [Concomitant]
  3. COLOFAC (MEBEVERINE HYDROCHLORIDE) [Concomitant]

REACTIONS (3)
  - BLISTER [None]
  - PURULENCE [None]
  - WHEEZING [None]
